FAERS Safety Report 6651072-5 (Version None)
Quarter: 2010Q1

REPORT INFORMATION
  Report Type: 
  Country: None (occurrence: None)
  Receive Date: 20100325
  Receipt Date: 20100320
  Transmission Date: 20100710
  Serious: Yes (Life-Threatening)
  Sender: FDA-Public Use
  Company Number: US-PFIZER INC-2010013225

PATIENT
  Sex: Female
  Weight: 60.317 kg

DRUGS (15)
  1. NAPROXEN [Suspect]
     Indication: BACK PAIN
     Dosage: TANEZUMAB/PLACEBO, EVERY 8 WEEKS
     Route: 042
     Dates: start: 20090901, end: 20091218
  2. BLINDED *NO SUBJECT DRUG [Suspect]
     Indication: BACK PAIN
     Dosage: TANEZUMAB/PLACEBO, EVERY 8 WEEKS
     Route: 042
     Dates: start: 20090901, end: 20091218
  3. BLINDED *PLACEBO [Suspect]
     Indication: BACK PAIN
     Dosage: TANEZUMAB/PLACEBO, EVERY 8 WEEKS
     Route: 042
     Dates: start: 20090901, end: 20091218
  4. BLINDED PF-04383119 [Suspect]
     Indication: BACK PAIN
     Dosage: TANEZUMAB/PLACEBO, EVERY 8 WEEKS
     Route: 042
     Dates: start: 20090901, end: 20091218
  5. NAPROXEN [Suspect]
     Dosage: NAPROXEN/PLACEBO, 2X/DAY
     Route: 048
     Dates: start: 20090901, end: 20091218
  6. BLINDED *NO SUBJECT DRUG [Suspect]
     Dosage: NAPROXEN/PLACEBO, 2X/DAY
     Route: 048
     Dates: start: 20090901, end: 20091218
  7. BLINDED *PLACEBO [Suspect]
     Dosage: NAPROXEN/PLACEBO, 2X/DAY
     Route: 048
     Dates: start: 20090901, end: 20091218
  8. BLINDED PF-04383119 [Suspect]
     Dosage: NAPROXEN/PLACEBO, 2X/DAY
     Route: 048
     Dates: start: 20090901, end: 20091218
  9. XANAX [Suspect]
     Indication: ANXIETY
     Dosage: UNK
     Route: 048
     Dates: start: 20100101, end: 20100113
  10. ACETAMINOPHEN [Suspect]
     Dosage: 500 MG, AS NEEDED
     Route: 048
     Dates: start: 20090901
  11. TENORMIN [Concomitant]
     Indication: HYPERTENSION
     Dosage: 50 MG, 1X/DAY
     Route: 048
     Dates: start: 20060301
  12. NORLESTRIN FE [Concomitant]
     Indication: MENSTRUATION IRREGULAR
     Dosage: 1 TABLET, QD
     Route: 048
     Dates: start: 20090201
  13. NORLESTRIN FE [Concomitant]
     Indication: CONTRACEPTION
  14. VITAMIN E [Concomitant]
     Dosage: UNK
     Route: 048
     Dates: start: 20090401
  15. VITAMIN B-12 [Concomitant]
     Dosage: UNK
     Route: 048
     Dates: start: 20090401

REACTIONS (1)
  - SUICIDE ATTEMPT [None]
